FAERS Safety Report 25700339 (Version 3)
Quarter: 2025Q4

REPORT INFORMATION
  Report Type: Report from Study
  Country: US (occurrence: US)
  Receive Date: 20250819
  Receipt Date: 20251224
  Transmission Date: 20260117
  Serious: Yes (Hospitalization)
  Sender: ACADIA PHARMACEUTICALS
  Company Number: US-ACADIA PHARMACEUTICALS INC.-ACA-2025-TRF-009272

PATIENT
  Age: 55 Year
  Sex: Female

DRUGS (1)
  1. DAYBUE [Suspect]
     Active Substance: TROFINETIDE
     Indication: Rett syndrome
     Dosage: 60 MILLILITER, BID
     Route: 048

REACTIONS (4)
  - Cholecystectomy [Recovering/Resolving]
  - Gait inability [Unknown]
  - Bedridden [Unknown]
  - Vomiting [Unknown]

NARRATIVE: CASE EVENT DATE: 20251204
